FAERS Safety Report 21178210 (Version 5)
Quarter: 2022Q4

REPORT INFORMATION
  Report Type: Spontaneous
  Country: JP (occurrence: JP)
  Receive Date: 20220805
  Receipt Date: 20221025
  Transmission Date: 20230112
  Serious: Yes (Other)
  Sender: FDA-Public Use
  Company Number: JP-DSJP-DSJ-2022-127456

PATIENT
  Age: 71 Year
  Sex: Male
  Weight: 56.8 kg

DRUGS (9)
  1. ENHERTU [Suspect]
     Active Substance: FAM-TRASTUZUMAB DERUXTECAN-NXKI
     Indication: HER2 positive gastric cancer
     Dosage: 6.4 MG/KG, ONCE EVERY 3 WK
     Route: 041
     Dates: start: 20210902, end: 20210902
  2. ENHERTU [Suspect]
     Active Substance: FAM-TRASTUZUMAB DERUXTECAN-NXKI
     Dosage: 5.4 MG/M2, ONCE EVERY 3 WK
     Route: 041
     Dates: start: 20220224, end: 20220224
  3. ENHERTU [Suspect]
     Active Substance: FAM-TRASTUZUMAB DERUXTECAN-NXKI
     Dosage: 5.4 MG/M2, ONCE EVERY 3 WK
     Route: 041
     Dates: start: 20220317, end: 20220317
  4. ENHERTU [Suspect]
     Active Substance: FAM-TRASTUZUMAB DERUXTECAN-NXKI
     Dosage: 4.4 MG/M2, ONCE EVERY 3 WK
     Route: 041
     Dates: start: 20220630, end: 20220630
  5. ENHERTU [Suspect]
     Active Substance: FAM-TRASTUZUMAB DERUXTECAN-NXKI
     Dosage: 4.4 MG/M2, ONCE EVERY 3 WK
     Route: 041
     Dates: start: 20220721, end: 20220721
  6. ENHERTU [Suspect]
     Active Substance: FAM-TRASTUZUMAB DERUXTECAN-NXKI
     Dosage: 4.4 MG/M2, ONCE EVERY 3 WK
     Route: 041
     Dates: start: 20220818, end: 20220818
  7. ENHERTU [Suspect]
     Active Substance: FAM-TRASTUZUMAB DERUXTECAN-NXKI
     Dosage: 4.4 MG/M2, ONCE EVERY 3 WK
     Route: 041
     Dates: start: 20220908, end: 20220908
  8. ENHERTU [Suspect]
     Active Substance: FAM-TRASTUZUMAB DERUXTECAN-NXKI
     Dosage: 4.4 MG/M2, ONCE EVERY 3 WK
     Route: 041
     Dates: start: 20220929, end: 20220929
  9. LYRICA [Concomitant]
     Active Substance: PREGABALIN
     Dosage: UNK
     Route: 065

REACTIONS (3)
  - Myelosuppression [Recovered/Resolved]
  - Anaemia [Recovered/Resolved]
  - Malaise [Recovered/Resolved]
